FAERS Safety Report 7535891-9 (Version None)
Quarter: 2011Q2

REPORT INFORMATION
  Report Type: 
  Country: None (occurrence: None)
  Receive Date: 20110602
  Receipt Date: 20110518
  Transmission Date: 20111010
  Serious: Yes (Hospitalization)
  Sender: FDA-Public Use
  Company Number: 2011P1006571

PATIENT
  Age: 88 Year
  Sex: Female
  Weight: 49.8957 kg

DRUGS (7)
  1. WARFARIN SODIUM [Suspect]
     Indication: ATRIAL FIBRILLATION
     Dosage: 7.5 MG; QD; PO
     Route: 048
     Dates: start: 20110421, end: 20110512
  2. DIGOXIN [Concomitant]
  3. DILTIAZEM [Concomitant]
  4. OMEPRAZOLE [Concomitant]
  5. POTASSIUM [Concomitant]
  6. ATENOLOL [Concomitant]
  7. FUROSEMIDE [Concomitant]

REACTIONS (8)
  - INTERNATIONAL NORMALISED RATIO INCREASED [None]
  - CYSTITIS [None]
  - PRODUCT QUALITY ISSUE [None]
  - INITIAL INSOMNIA [None]
  - CONTUSION [None]
  - BLOOD URINE PRESENT [None]
  - ANAEMIA [None]
  - GAIT DISTURBANCE [None]
